FAERS Safety Report 15619086 (Version 1)
Quarter: 2018Q4

REPORT INFORMATION
  Report Type: Spontaneous
  Country: US (occurrence: US)
  Receive Date: 20181114
  Receipt Date: 20181114
  Transmission Date: 20190205
  Serious: Yes (Other)
  Sender: FDA-Public Use
  Company Number: US-TEVA-2018-US-974268

PATIENT
  Age: 13 Year
  Sex: Female

DRUGS (5)
  1. WARFARIN [Suspect]
     Active Substance: WARFARIN
     Indication: PROTEIN C DEFICIENCY
     Route: 065
  2. RIVAROXABAN [Suspect]
     Active Substance: RIVAROXABAN
     Dosage: 30 MILLIGRAM DAILY;
     Route: 048
  3. HEPARIN [Concomitant]
     Active Substance: HEPARIN SODIUM
     Indication: PROTEIN C DEFICIENCY
     Route: 065
  4. RIVAROXABAN [Suspect]
     Active Substance: RIVAROXABAN
     Indication: PROTEIN C DEFICIENCY
     Dosage: 15 MILLIGRAM DAILY; TITRATED TO 30MG OVER 3 WEEKS
     Route: 048
  5. RIVAROXABAN [Suspect]
     Active Substance: RIVAROXABAN
     Dosage: 22.5 MILLIGRAM DAILY;
     Route: 048

REACTIONS (3)
  - Skin necrosis [Recovered/Resolved]
  - Menorrhagia [Recovered/Resolved]
  - Epistaxis [Recovered/Resolved]
